FAERS Safety Report 5455921-8 (Version None)
Quarter: 2007Q3

REPORT INFORMATION
  Report Type: 
  Country: None (occurrence: None)
  Receive Date: 20070918
  Receipt Date: 20070330
  Transmission Date: 20080115
  Serious: Yes (Other)
  Sender: FDA-Public Use
  Company Number: US-ASTRAZENECA-2006UW24216

PATIENT
  Age: 63 Year
  Sex: Female
  Weight: 73.6 kg

DRUGS (5)
  1. SEROQUEL [Suspect]
     Route: 048
  2. ABILIFY [Concomitant]
     Dates: start: 20060101, end: 20070101
  3. RISPERDAL [Concomitant]
  4. ZYPREXA [Concomitant]
  5. LEXAPRO [Concomitant]

REACTIONS (2)
  - DIABETES MELLITUS [None]
  - TARDIVE DYSKINESIA [None]
